FAERS Safety Report 23260484 (Version 3)
Quarter: 2023Q4

REPORT INFORMATION
  Report Type: Spontaneous
  Country: DE (occurrence: DE)
  Receive Date: 20231205
  Receipt Date: 20231226
  Transmission Date: 20240110
  Serious: Yes (Congenital Anomaly)
  Sender: FDA-Public Use
  Company Number: DE-PBPHARMA-231117-01

PATIENT
  Sex: Female

DRUGS (3)
  1. PREDNISOLONE [Suspect]
     Active Substance: PREDNISOLONE
     Indication: Maternal exposure timing unspecified
     Route: 064
  2. TACROLIMUS [Suspect]
     Active Substance: TACROLIMUS
     Indication: Maternal exposure timing unspecified
     Route: 064
  3. AZATHIOPRINE [Suspect]
     Active Substance: AZATHIOPRINE
     Indication: Maternal exposure timing unspecified
     Route: 064

REACTIONS (5)
  - Lymphopenia [Recovering/Resolving]
  - Combined immunodeficiency [Unknown]
  - Blood immunoglobulin A decreased [Unknown]
  - Foetal exposure during pregnancy [Unknown]
  - Blood immunoglobulin M decreased [Unknown]
